FAERS Safety Report 7105079-4 (Version None)
Quarter: 2010Q4

REPORT INFORMATION
  Report Type: 
  Country: None (occurrence: None)
  Receive Date: 20101110
  Receipt Date: 20101026
  Transmission Date: 20110411
  Serious: Yes (Hospitalization)
  Sender: FDA-Public Use
  Company Number: 2010004668

PATIENT
  Age: 37 Year
  Sex: Male

DRUGS (2)
  1. ERLOTINIB (ERLOTINIB) (TABLET) (ERLOTINIB) [Suspect]
     Indication: HEAD AND NECK CANCER
     Dosage: 150 MG, QD, ORAL
     Route: 048
     Dates: start: 20100920, end: 20101025
  2. CISPLATIN [Suspect]
     Indication: HEAD AND NECK CANCER
     Dosage: 50 MG/M2, INTRAVENOUS
     Route: 042
     Dates: start: 20100927, end: 20101018

REACTIONS (4)
  - DYSPHAGIA [None]
  - MUCOSAL INFLAMMATION [None]
  - NAUSEA [None]
  - TINNITUS [None]
